FAERS Safety Report 4354642-2 (Version None)
Quarter: 2004Q2

REPORT INFORMATION
  Report Type: 
  Country: None (occurrence: None)
  Receive Date: 20040506
  Receipt Date: 20040506
  Transmission Date: 20050107
  Serious: Yes (Death)
  Sender: FDA-Public Use
  Company Number: None

PATIENT
  Sex: Female
  Weight: 70 kg

DRUGS (4)
  1. INTEGRILIN [Suspect]
     Indication: ACUTE CORONARY SYNDROME
     Dosage: 8.25 MG INFUSION IV
     Route: 042
     Dates: start: 20031227, end: 20031229
  2. LOVENOX [Suspect]
     Indication: ACUTE CORONARY SYNDROME
     Dosage: 70 MG Q12 H SQ
     Route: 058
     Dates: start: 20031228, end: 20031229
  3. ECOTRIN [Concomitant]
  4. PLAVIX [Concomitant]

REACTIONS (5)
  - AGONAL RHYTHM [None]
  - BRADYCARDIA [None]
  - CARDIO-RESPIRATORY ARREST [None]
  - HYPOTENSION [None]
  - RETROPERITONEAL HAEMORRHAGE [None]
